FAERS Safety Report 8830836 (Version 1)
Quarter: 2012Q4

REPORT INFORMATION
  Report Type: 
  Country: US (occurrence: US)
  Receive Date: 20121009
  Receipt Date: 20121009
  Transmission Date: 20130627
  Serious: Yes (Hospitalization, Other)
  Sender: FDA-Public Use
  Company Number: US-009507513-2012SP028991

PATIENT

DRUGS (2)
  1. NUVARING [Suspect]
     Indication: CONTRACEPTION
     Dosage: UNK
     Dates: start: 20100617, end: 20100801
  2. NUVARING [Suspect]
     Indication: LIBIDO DECREASED

REACTIONS (5)
  - Costochondritis [Unknown]
  - Pulmonary embolism [Unknown]
  - Depression [Not Recovered/Not Resolved]
  - Thrombosis [Unknown]
  - Off label use [Unknown]
